FAERS Safety Report 16697195 (Version 1)
Quarter: 2019Q4

REPORT INFORMATION
  Report Type: Spontaneous
  Country: US (occurrence: US)
  Receive Date: 20190812
  Receipt Date: 20190812
  Transmission Date: 20200122
  Serious: Yes (Hospitalization)
  Sender: FDA-Public Use
  Company Number: None

PATIENT
  Age: 84 Year
  Sex: Female

DRUGS (11)
  1. TIMOLOL MAL SOL [Concomitant]
  2. PILOCARPINE. [Concomitant]
     Active Substance: PILOCARPINE
  3. CELEBREX [Concomitant]
     Active Substance: CELECOXIB
  4. AMLOD/BENAZP [Concomitant]
  5. CENTRUM [Concomitant]
     Active Substance: VITAMINS
  6. ORENCIA [Suspect]
     Active Substance: ABATACEPT
     Indication: RHEUMATOID ARTHRITIS
     Dosage: ?          OTHER FREQUENCY:WEEKLY;?
     Route: 058
     Dates: start: 20150925
  7. TRAVATAN [Concomitant]
     Active Substance: TRAVOPROST
  8. PREDNISONE. [Concomitant]
     Active Substance: PREDNISONE
  9. ALEVE [Concomitant]
     Active Substance: NAPROXEN SODIUM
  10. ASPIRIN. [Concomitant]
     Active Substance: ASPIRIN
  11. MYRBETRIQ [Concomitant]
     Active Substance: MIRABEGRON

REACTIONS (1)
  - Knee arthroplasty [None]

NARRATIVE: CASE EVENT DATE: 20190806
